FAERS Safety Report 13304402 (Version 1)
Quarter: 2017Q1

REPORT INFORMATION
  Report Type: Spontaneous
  Country: US (occurrence: US)
  Receive Date: 20170308
  Receipt Date: 20170308
  Transmission Date: 20170428
  Serious: No
  Sender: FDA-Public Use
  Company Number: US-AMGEN-USASP2017033311

PATIENT
  Sex: Female

DRUGS (4)
  1. TERCONAZOL [Concomitant]
     Dosage: UNK
  2. GYNAZOLE-1 [Concomitant]
     Active Substance: BUTOCONAZOLE NITRATE
     Dosage: UNK
  3. KETOCONAZOLE. [Concomitant]
     Active Substance: KETOCONAZOLE
     Dosage: UNK
  4. ENBREL [Suspect]
     Active Substance: ETANERCEPT
     Indication: RHEUMATOID ARTHRITIS
     Dosage: 50 MG, QWK
     Route: 058
     Dates: start: 20151207

REACTIONS (1)
  - Drug effect decreased [Unknown]
